FAERS Safety Report 4473845-X (Version None)
Quarter: 2004Q4

REPORT INFORMATION
  Report Type: 
  Country: None (occurrence: None)
  Receive Date: 20041008
  Receipt Date: 20041008
  Transmission Date: 20050328
  Serious: Yes (Hospitalization)
  Sender: FDA-Public Use
  Company Number: None

PATIENT
  Age: 60 Year
  Sex: Female
  Weight: 58.9676 kg

DRUGS (4)
  1. VIOXX [Suspect]
     Indication: BACK PAIN
     Dosage: 25 MG - ONE TAB 1/ DAY ORAL
     Route: 048
     Dates: start: 20040923, end: 20040929
  2. CALCIUM [Concomitant]
  3. MULTIVITAMIN [Concomitant]
  4. GLUCOSAMINE/CHONDROITIN [Concomitant]

REACTIONS (1)
  - HYPERSENSITIVITY [None]
